FAERS Safety Report 8734702 (Version 2)
Quarter: 2014Q2

REPORT INFORMATION
  Report Type: Spontaneous
  Country: GB (occurrence: GB)
  Receive Date: 20120821
  Receipt Date: 20140501
  Transmission Date: 20141212
  Serious: Yes (Death)
  Sender: FDA-Public Use
  Company Number: PHHY2012GB071751

PATIENT
  Age: 3 Month
  Sex: Male

DRUGS (3)
  1. METHADONE [Suspect]
     Route: 063
  2. HEROIN [Concomitant]
  3. ANTIDEPRESSANTS [Concomitant]

REACTIONS (2)
  - Death [Fatal]
  - Exposure during breast feeding [Unknown]
